FAERS Safety Report 20017613 (Version 1)
Quarter: 2021Q4

REPORT INFORMATION
  Report Type: Spontaneous
  Country: GB (occurrence: GB)
  Receive Date: 20211031
  Receipt Date: 20211031
  Transmission Date: 20220303
  Serious: Yes (Other)
  Sender: FDA-Public Use
  Company Number: None

PATIENT
  Age: 75 Year
  Sex: Male
  Weight: 67 kg

DRUGS (2)
  1. OMEPRAZOLE [Interacting]
     Active Substance: OMEPRAZOLE
     Route: 050
     Dates: start: 20210922
  2. NAPROXEN [Interacting]
     Active Substance: NAPROXEN
     Dosage: 2 SEPARATED DOSES
     Dates: start: 20210922

REACTIONS (2)
  - Urticaria [Recovering/Resolving]
  - Drug interaction [Recovering/Resolving]

NARRATIVE: CASE EVENT DATE: 20210930
